FAERS Safety Report 24911143 (Version 2)
Quarter: 2025Q1

REPORT INFORMATION
  Report Type: Report from Study
  Country: KR (occurrence: KR)
  Receive Date: 20250131
  Receipt Date: 20250216
  Transmission Date: 20250408
  Serious: Yes (Other)
  Sender: JOHNSON AND JOHNSON
  Company Number: KR-JNJFOC-20250192629

PATIENT
  Age: 75 Year
  Sex: Female
  Weight: 60 kg

DRUGS (2)
  1. LAZERTINIB [Suspect]
     Active Substance: LAZERTINIB
     Indication: Non-small cell lung cancer
     Dates: start: 20231113, end: 20240508
  2. LAZERTINIB [Suspect]
     Active Substance: LAZERTINIB
     Dates: start: 20240509, end: 20240619

REACTIONS (1)
  - Hepatotoxicity [Recovered/Resolved]

NARRATIVE: CASE EVENT DATE: 20240429
